FAERS Safety Report 7417474-4 (Version None)
Quarter: 2011Q2

REPORT INFORMATION
  Report Type: 
  Country: None (occurrence: None)
  Receive Date: 20110415
  Receipt Date: 20110412
  Transmission Date: 20111010
  Serious: Yes (Other)
  Sender: FDA-Public Use
  Company Number: GB-PFIZER INC-2011080961

PATIENT
  Age: 35 Year
  Weight: 73 kg

DRUGS (2)
  1. CHAMPIX [Suspect]
     Indication: SMOKING CESSATION THERAPY
     Dosage: 1 MG, UNK
     Route: 048
     Dates: start: 20101001, end: 20110207
  2. MULTI-VITAMINS [Concomitant]
     Dosage: 1 DF, UNK
     Route: 048

REACTIONS (5)
  - DEPRESSED MOOD [None]
  - PSYCHOTIC DISORDER [None]
  - HALLUCINATION, AUDITORY [None]
  - DEPRESSION [None]
  - HALLUCINATION, VISUAL [None]
